FAERS Safety Report 7808689-1 (Version None)
Quarter: 2011Q4

REPORT INFORMATION
  Report Type: 
  Country: None (occurrence: None)
  Receive Date: 20111012
  Receipt Date: 20111004
  Transmission Date: 20120403
  Serious: Yes (Hospitalization)
  Sender: FDA-Public Use
  Company Number: BR-ASTELLAS-2011US006519

PATIENT
  Sex: Female
  Weight: 74 kg

DRUGS (14)
  1. ADENOSCAN [Suspect]
     Indication: SCAN MYOCARDIAL PERFUSION
     Dosage: 62.4 MG, TOTAL DOSE
     Route: 042
     Dates: start: 20110405, end: 20110405
  2. LEVOTHYROXINE SODIUM [Concomitant]
     Indication: HYPOTHYROIDISM
     Dosage: 25 UG, UID/QD
     Route: 048
     Dates: start: 20020101
  3. SIMVASTATIN [Concomitant]
     Indication: CORONARY ARTERY DISEASE
     Dosage: 40 MG, UID/QD
     Route: 048
     Dates: start: 20020101
  4. FLUOXETINE HCL [Concomitant]
     Indication: DEPRESSION
     Dosage: 40 MG, UID/QD
     Route: 048
     Dates: start: 20090101
  5. AMINOFILIN [Concomitant]
     Indication: ABDOMINAL PAIN UPPER
  6. FLUOXETINE HCL [Concomitant]
     Indication: ANXIETY
  7. CLOPIDOGREL [Concomitant]
     Indication: CORONARY ARTERY DISEASE
     Dosage: 75 MG, UID/QD
     Route: 048
     Dates: start: 20020101
  8. AMINOFILIN [Concomitant]
     Indication: ANGINA PECTORIS
     Dosage: 240 MG, TOTAL DOSE
     Route: 042
     Dates: start: 20110405, end: 20110405
  9. SUSPECT STUDY DRUG [Suspect]
     Indication: PRODUCT USED FOR UNKNOWN INDICATION
     Dosage: UNK
     Route: 065
  10. B VITAMIN COMP [Concomitant]
     Indication: HYPOVITAMINOSIS
     Dosage: 2 ML, UID/QD
     Route: 048
     Dates: start: 20100101
  11. INSULIN [Concomitant]
     Indication: TYPE 2 DIABETES MELLITUS
     Dosage: 40 U, BID
     Route: 058
     Dates: start: 20020101
  12. ASPIRIN [Concomitant]
     Indication: CORONARY ARTERY DISEASE
     Dosage: 100 MG, UID/QD
     Route: 048
     Dates: start: 20020101
  13. AMINOFILIN [Concomitant]
     Indication: HEADACHE
  14. AMINOFILIN [Concomitant]
     Indication: OROPHARYNGEAL PAIN

REACTIONS (1)
  - ANGINA UNSTABLE [None]
